FAERS Safety Report 15887760 (Version 1)
Quarter: 2019Q1

REPORT INFORMATION
  Report Type: Spontaneous
  Country: US (occurrence: US)
  Receive Date: 20190130
  Receipt Date: 20190130
  Transmission Date: 20190417
  Serious: No
  Sender: FDA-Public Use
  Company Number: US-HORIZON-PRO-0016-2019

PATIENT
  Age: 11 Year
  Sex: Female

DRUGS (5)
  1. CYTRA-K. PHOSPHA [Concomitant]
  2. PROCYSBI [Suspect]
     Active Substance: CYSTEAMINE BITARTRATE
     Indication: CYSTINOSIS
     Dosage: 12 OF 75 MG TABLETS EVERY 12 HOURS
  3. POTASSIUM CHLORIDE. [Concomitant]
     Active Substance: POTASSIUM CHLORIDE
  4. ZOFRAN [Concomitant]
     Active Substance: ONDANSETRON HYDROCHLORIDE
  5. CALCITRIOL. [Concomitant]
     Active Substance: CALCITRIOL

REACTIONS (8)
  - Nausea [Unknown]
  - Vomiting [Unknown]
  - White blood cell disorder [Unknown]
  - Headache [Unknown]
  - Treatment noncompliance [Unknown]
  - Malaise [Unknown]
  - Intentional product use issue [Unknown]
  - Depression [Unknown]
